FAERS Safety Report 21296001 (Version 1)
Quarter: 2022Q3

REPORT INFORMATION
  Report Type: Spontaneous
  Country: US (occurrence: US)
  Receive Date: 20220906
  Receipt Date: 20220906
  Transmission Date: 20221027
  Serious: No
  Sender: FDA-Public Use
  Company Number: US-BRISTOL-MYERS SQUIBB COMPANY-2022-100971

PATIENT
  Age: 84 Year
  Sex: Male

DRUGS (1)
  1. REVLIMID [Suspect]
     Active Substance: LENALIDOMIDE
     Indication: Benign prostatic hyperplasia
     Dosage: FREQ: TAKE 1 CAPSULE BY MOUTH DAILY FOR  21 DAYS OF EVERY 28-DAY CYCLE
     Route: 048

REACTIONS (2)
  - White blood cell count decreased [Unknown]
  - Intentional product use issue [Unknown]
